FAERS Safety Report 6945743-0 (Version None)
Quarter: 2010Q3

REPORT INFORMATION
  Report Type: 
  Country: None (occurrence: None)
  Receive Date: 20100827
  Receipt Date: 20100820
  Transmission Date: 20110219
  Serious: Yes (Other)
  Sender: FDA-Public Use
  Company Number: A0837854A

PATIENT
  Age: 73 Year
  Sex: Female

DRUGS (1)
  1. AVANDIA [Suspect]
     Dosage: 8MG THREE TIMES PER DAY
     Route: 048

REACTIONS (2)
  - CARDIAC FAILURE [None]
  - INAPPROPRIATE SCHEDULE OF DRUG ADMINISTRATION [None]
